FAERS Safety Report 5241081-5 (Version None)
Quarter: 2007Q1

REPORT INFORMATION
  Report Type: 
  Country: None (occurrence: None)
  Receive Date: 20070214
  Receipt Date: 20070214
  Transmission Date: 20070707
  Serious: Yes (Hospitalization)
  Sender: FDA-Public Use
  Company Number: None

PATIENT
  Sex: Male

DRUGS (14)
  1. RITUXIMAB 100 MG/ 50 ML [Suspect]
     Dosage: 100 MG/HR ONCE IV
     Route: 042
     Dates: start: 20061218, end: 20061218
  2. DIPHENHYDRAMINE HCL [Concomitant]
  3. DEXAMETHASONE [Concomitant]
  4. DARBEPOETIN [Concomitant]
  5. MEGESTROL ACETATE [Concomitant]
  6. ALLOPURINOL SODIUM [Concomitant]
  7. ACYCLOVIR [Concomitant]
  8. FLUCONAZOLE [Concomitant]
  9. HYDROCHLOROTHIAZIDE [Concomitant]
  10. LEVOTHYROXINE SODIUM [Concomitant]
  11. LISINOPRIL [Concomitant]
  12. METOPROLOL SUCCINATE [Concomitant]
  13. OMEPRAZOLE [Concomitant]
  14. PREDNISONE [Concomitant]

REACTIONS (1)
  - CHEST PAIN [None]
